FAERS Safety Report 10854013 (Version 1)
Quarter: 2015Q1

REPORT INFORMATION
  Report Type: Spontaneous
  Country: US (occurrence: None)
  Receive Date: 20150218
  Receipt Date: 20150218
  Transmission Date: 20150721
  Serious: Yes (Disabling, Other)
  Sender: FDA-Public Use
  Company Number: US-000884N

PATIENT
  Age: 71 Year
  Sex: Female
  Weight: 53.52 kg

DRUGS (15)
  1. VITAMIN E [Concomitant]
     Active Substance: .ALPHA.-TOCOPHEROL
  2. VITAMIN D3 [Concomitant]
     Active Substance: CHOLECALCIFEROL
  3. IRON [Concomitant]
     Active Substance: IRON
  4. FLORINEF ACETATE [Suspect]
     Active Substance: FLUDROCORTISONE ACETATE
     Indication: SODIUM RETENTION
     Dates: end: 20140211
  5. MAGNESIUM [Concomitant]
     Active Substance: MAGNESIUM
  6. OMEPRAZOLE. [Concomitant]
     Active Substance: OMEPRAZOLE
  7. GATTEX [Suspect]
     Active Substance: TEDUGLUTIDE\WATER
     Indication: SHORT-BOWEL SYNDROME
     Route: 058
     Dates: start: 20131025, end: 201401
  8. VITAMIN B12 [Concomitant]
     Active Substance: CYANOCOBALAMIN
  9. SOLUTIONS FOR PARENTERAL NUTRITION [Concomitant]
     Active Substance: AMINO ACIDS\DEXTROSE\ELECTROLYTES NOS
  10. CALCIUM [Concomitant]
     Active Substance: CALCIUM
  11. PRILOSEC [Concomitant]
     Active Substance: OMEPRAZOLE MAGNESIUM
  12. AMBIEN [Concomitant]
     Active Substance: ZOLPIDEM TARTRATE
  13. ATIVAN [Concomitant]
     Active Substance: LORAZEPAM
  14. MULTIVITAMINS [Concomitant]
     Active Substance: VITAMINS
  15. POTASSIUM [Concomitant]
     Active Substance: POTASSIUM

REACTIONS (11)
  - Walking aid user [None]
  - Injection site pain [None]
  - Weight decreased [None]
  - Abdominal pain upper [None]
  - Drug ineffective [None]
  - Drug dose omission [None]
  - Swelling [None]
  - Oedema peripheral [None]
  - Diarrhoea [None]
  - Asthenia [None]
  - Weight increased [None]

NARRATIVE: CASE EVENT DATE: 20130101
